FAERS Safety Report 6391238-5 (Version None)
Quarter: 2009Q4

REPORT INFORMATION
  Report Type: 
  Country: None (occurrence: None)
  Receive Date: 20091005
  Receipt Date: 20090922
  Transmission Date: 20100525
  Serious: Yes (Other)
  Sender: FDA-Public Use
  Company Number: CERZ-1000885

PATIENT
  Age: 40 Year
  Sex: Male
  Weight: 141.5 kg

DRUGS (1)
  1. CEREZYME [Suspect]
     Indication: GAUCHER'S DISEASE
     Dosage: 3600 U, Q2W, INTRAVENOUS
     Route: 042
     Dates: start: 20000913

REACTIONS (6)
  - DENTAL CARIES [None]
  - DIABETES MELLITUS [None]
  - INFUSION RELATED REACTION [None]
  - PAIN IN EXTREMITY [None]
  - TOOTH LOSS [None]
  - TYPE 2 DIABETES MELLITUS [None]
